FAERS Safety Report 7457372-3 (Version None)
Quarter: 2011Q2

REPORT INFORMATION
  Report Type: 
  Country: None (occurrence: None)
  Receive Date: 20110502
  Receipt Date: 20110502
  Transmission Date: 20111010
  Serious: Yes (Other)
  Sender: FDA-Public Use
  Company Number: None

PATIENT
  Age: 47 Year
  Sex: Female
  Weight: 77.1115 kg

DRUGS (1)
  1. SUBOXONE [Suspect]
     Indication: DRUG DEPENDENCE
     Dosage: 8/2 MG THREE TIMES/DAY SL
     Route: 060
     Dates: start: 20101015, end: 20110429

REACTIONS (1)
  - DRUG WITHDRAWAL SYNDROME [None]
